FAERS Safety Report 5209254-5 (Version None)
Quarter: 2007Q1

REPORT INFORMATION
  Report Type: 
  Country: None (occurrence: None)
  Receive Date: 20070111
  Receipt Date: 20070102
  Transmission Date: 20070707
  Serious: Yes (Hospitalization, Other)
  Sender: FDA-Public Use
  Company Number: 234504

PATIENT
  Age: 73 Year
  Sex: Male
  Weight: 80 kg

DRUGS (18)
  1. RITUXAN [Suspect]
     Indication: CHRONIC LYMPHOCYTIC LEUKAEMIA
     Dosage: 375 MG/M2, INTRAVENOUS
     Route: 042
     Dates: start: 20051202, end: 20060331
  2. FLUDARABINE PHOSPHATE [Suspect]
     Indication: CHRONIC LYMPHOCYTIC LEUKAEMIA
     Dosage: 25 MG/M2, INTRAVENOUS
     Route: 042
     Dates: start: 20051202, end: 20060331
  3. CAMPATH [Suspect]
     Indication: CHRONIC LYMPHOCYTIC LEUKAEMIA
     Dosage: 3/WEEK, SUBCUTANEOUS
     Route: 058
     Dates: start: 20060911, end: 20060930
  4. ALLOPURINOL [Concomitant]
  5. SULFAMETHOXAZOLE + TRIMETHOPRIM [Concomitant]
  6. LORTAB [Concomitant]
  7. DITROPAN [Concomitant]
  8. COLACE (DOCUSATE SODIUM) [Concomitant]
  9. SENNA (SENNA) [Concomitant]
  10. OCUVITE (ASCORBIC ACID, BETA CAROTENE, COPPER NOS, LUTEIN, SELENIUM NO [Concomitant]
  11. PHENAZOPYRIDINE HCL TAB [Concomitant]
  12. ASPIRIN ^BAYER^ (ASPIRIN) [Concomitant]
  13. ADVAIR (FLUTICASONE PROPIONAT, SALMETEROL XINAFOATE) [Concomitant]
  14. LOVASTATIN [Concomitant]
  15. DAPSONE [Concomitant]
  16. ACYCLOVIR [Concomitant]
  17. FISH OIL (FISH OIL) [Concomitant]
  18. MULTIVITAMIN SUPPLEMENT (MULTIVITAMINS NOS) [Concomitant]

REACTIONS (7)
  - BLADDER STENOSIS [None]
  - BLOOD CREATININE INCREASED [None]
  - BLOOD UREA INCREASED [None]
  - CYSTITIS HAEMORRHAGIC [None]
  - HAEMOGLOBIN DECREASED [None]
  - NEUTROPENIA [None]
  - URETERITIS [None]
